FAERS Safety Report 23963601 (Version 1)
Quarter: 2024Q2

REPORT INFORMATION
  Report Type: Spontaneous
  Country: CH (occurrence: CH)
  Receive Date: 20240611
  Receipt Date: 20240611
  Transmission Date: 20240715
  Serious: Yes (Hospitalization)
  Sender: FDA-Public Use
  Company Number: None

PATIENT
  Age: 67 Year
  Sex: Female
  Weight: 126.3 kg

DRUGS (23)
  1. JARDIANCE [Suspect]
     Active Substance: EMPAGLIFLOZIN
     Indication: Heart failure with preserved ejection fraction
     Dosage: VIA PEG
     Dates: start: 20240416, end: 20240502
  2. LASIX [Suspect]
     Active Substance: FUROSEMIDE
     Indication: Product used for unknown indication
     Dosage: VIA PICC LINE ?20 MG FUROSEMID PER 2 MILLILITRE; 25ML-25ML-0-0 (INFUSION DURING 100 MINUTES)
  3. SPIRIVA [Concomitant]
     Active Substance: TIOTROPIUM BROMIDE MONOHYDRATE
     Indication: Product used for unknown indication
     Dosage: 18 MICROGRAM TIOTROPIUM PER INHALATION
  4. SPIRONOLACTONE [Concomitant]
     Active Substance: SPIRONOLACTONE
     Indication: Product used for unknown indication
     Dosage: VIA PEG?100 MG SPIRONOLACTON PER TABLET
  5. CORDARONE [Concomitant]
     Active Substance: AMIODARONE HYDROCHLORIDE
     Indication: Product used for unknown indication
     Dosage: VIA PEG?200 MG AMIODARONE PER TABLET, MONDAY TO FRIDAY: 1 TABLET PER DAY
  6. ELIQUIS [Concomitant]
     Active Substance: APIXABAN
     Indication: Product used for unknown indication
     Dosage: VIA PEG
  7. ESOMEPRAZOL AXAPHARM [Concomitant]
     Indication: Product used for unknown indication
     Dosage: VIA PEG
  8. KCL HAUSMANN [Concomitant]
     Indication: Product used for unknown indication
     Dosage: 10 MMOL POTASSIUM PER TABLET
  9. KCL HAUSMANN [Concomitant]
     Dosage: 10 MMOL POTASSIUM PER TABLET; 3-3-3-3
  10. TIROSINT [Concomitant]
     Active Substance: LEVOTHYROXINE SODIUM
     Indication: Product used for unknown indication
     Dosage: VIA PEG
  11. MAGNESIUM ASPARTATE HYDROCHLORIDE [Concomitant]
     Active Substance: MAGNESIUM ASPARTATE HYDROCHLORIDE
     Indication: Product used for unknown indication
     Dosage: VIA PEG
  12. METAMIZOLE [Concomitant]
     Active Substance: METAMIZOLE
     Indication: Product used for unknown indication
     Dosage: VIA PEG?0,5 MG METAMIZOL PER ML
  13. METAMIZOLE [Concomitant]
     Active Substance: METAMIZOLE
     Dosage: VIA PEG ; AS NECESSARY
  14. METOLAZONE [Concomitant]
     Active Substance: METOLAZONE
     Indication: Product used for unknown indication
     Dosage: VIA PEG?5 MG METOLAZON PER TABLET
  15. METOPROLOL [Concomitant]
     Active Substance: METOPROLOL
     Indication: Product used for unknown indication
     Dosage: VIA PEG
  16. ASCORBIC ACID\MINERALS\VITAMINS [Concomitant]
     Active Substance: ASCORBIC ACID\MINERALS\VITAMINS
     Indication: Product used for unknown indication
     Dosage: VIA PEG
  17. NALOXONE HYDROCHLORIDE\OXYCODONE HYDROCHLORIDE [Concomitant]
     Active Substance: NALOXONE HYDROCHLORIDE\OXYCODONE HYDROCHLORIDE
     Indication: Product used for unknown indication
     Dosage: 5 MG OXYCODON, 2,5 MG NALOXON PER TABLET
  18. UREA [Concomitant]
     Active Substance: UREA
     Indication: Product used for unknown indication
  19. MULTILIND [Concomitant]
     Indication: Product used for unknown indication
  20. MOVICOL [Concomitant]
     Active Substance: POLYETHYLENE GLYCOL 3350\POTASSIUM CHLORIDE\SODIUM BICARBONATE\SODIUM CHLORIDE
     Indication: Product used for unknown indication
     Dosage: AS NECESSARY
  21. SODIUM PICOSULFATE [Concomitant]
     Active Substance: SODIUM PICOSULFATE
     Indication: Product used for unknown indication
     Dosage: AS NECESSARY
  22. OXYCODONE HYDROCHLORIDE [Concomitant]
     Active Substance: OXYCODONE HYDROCHLORIDE
     Indication: Product used for unknown indication
     Dosage: AS NECESSARY
  23. Dexeryl [Concomitant]
     Indication: Product used for unknown indication

REACTIONS (1)
  - Dizziness [Recovering/Resolving]

NARRATIVE: CASE EVENT DATE: 20240501
